FAERS Safety Report 9266809 (Version 2)
Quarter: 2013Q4

REPORT INFORMATION
  Report Type: Other
  Country: GB (occurrence: GB)
  Receive Date: 20130502
  Receipt Date: 20131023
  Transmission Date: 20140711
  Serious: Yes (Other)
  Sender: FDA-Public Use
  Company Number: GB-PERRIGO-13GB004442

PATIENT
  Age: 27 Year
  Sex: Male
  Weight: 64 kg

DRUGS (9)
  1. IBUPROFEN 16028/0013 200 MG [Suspect]
     Indication: BACK PAIN
     Dosage: UNK
     Route: 048
  2. IBUPROFEN 16028/0013 200 MG [Suspect]
     Indication: PAIN IN EXTREMITY
  3. NAPROXEN 250MG 16028/0144 [Suspect]
     Indication: BACK PAIN
     Dosage: 500 MG, BID
     Route: 048
  4. NAPROXEN 250MG 16028/0144 [Suspect]
     Indication: PAIN IN EXTREMITY
  5. IBUPROFEN [Suspect]
     Indication: BACK PAIN
     Dosage: UNK
     Route: 061
  6. IBUPROFEN [Suspect]
     Indication: PAIN IN EXTREMITY
  7. LAMOTRIGINE [Concomitant]
     Indication: EPILEPSY
     Dosage: 125 MG, UNK
     Route: 048
     Dates: start: 201209
  8. OXYCONTIN [Concomitant]
     Indication: PRODUCT USED FOR UNKNOWN INDICATION
     Dosage: UNK
     Route: 048
     Dates: start: 201209
  9. OXYNORM [Concomitant]
     Indication: PRODUCT USED FOR UNKNOWN INDICATION
     Dosage: 10 MG, UNK
     Route: 048
     Dates: start: 201209

REACTIONS (5)
  - Epilepsy [Recovered/Resolved]
  - Feeling abnormal [Recovered/Resolved]
  - Balance disorder [Recovered/Resolved]
  - Tremor [Recovered/Resolved]
  - Chills [Recovered/Resolved]
